FAERS Safety Report 24353137 (Version 1)
Quarter: 2024Q3

REPORT INFORMATION
  Report Type: Spontaneous
  Country: DE (occurrence: DE)
  Receive Date: 20240923
  Receipt Date: 20240923
  Transmission Date: 20241016
  Serious: Yes (Other)
  Sender: PFIZER
  Company Number: DE-TEVA-VS-3241651

PATIENT
  Sex: Female

DRUGS (2)
  1. PANTOPRAZOLE [Suspect]
     Active Substance: PANTOPRAZOLE
     Indication: Barrett^s oesophagus
     Dosage: 40 MILLIGRAM
  2. PANTOPRAZOLE [Suspect]
     Active Substance: PANTOPRAZOLE
     Dosage: 20 MILLIGRAM

REACTIONS (2)
  - Oesophageal carcinoma [Unknown]
  - Anaemia vitamin B12 deficiency [Unknown]
